FAERS Safety Report 13527402 (Version 1)
Quarter: 2017Q2

REPORT INFORMATION
  Report Type: Spontaneous
  Country: US (occurrence: US)
  Receive Date: 20170509
  Receipt Date: 20170509
  Transmission Date: 20170830
  Serious: Yes (Hospitalization)
  Sender: FDA-Public Use
  Company Number: US-VIFOR (INTERNATIONAL) INC.-VIT-2017-04953

PATIENT
  Age: 33 Year
  Sex: Male

DRUGS (7)
  1. VELTASSA [Suspect]
     Active Substance: PATIROMER
     Indication: HYPERKALAEMIA
     Route: 048
     Dates: start: 20161123
  2. NORVASC [Concomitant]
     Active Substance: AMLODIPINE BESYLATE
  3. FOLIC ACID. [Concomitant]
     Active Substance: FOLIC ACID
  4. FLOVENT HFA [Concomitant]
     Active Substance: FLUTICASONE PROPIONATE
  5. HYDROXYCARBAMIDE [Concomitant]
     Active Substance: HYDROXYUREA
  6. CLARITIN [Concomitant]
     Active Substance: LORATADINE
  7. SODIUM BICARBONATE. [Concomitant]
     Active Substance: SODIUM BICARBONATE

REACTIONS (1)
  - Sickle cell anaemia with crisis [Unknown]

NARRATIVE: CASE EVENT DATE: 20170502
